FAERS Safety Report 18625327 (Version 2)
Quarter: 2020Q4

REPORT INFORMATION
  Report Type: Report from Study
  Country: None (occurrence: US)
  Receive Date: 20201217
  Receipt Date: 20201222
  Transmission Date: 20210114
  Serious: Yes (Other)
  Sender: FDA-Public Use
  Company Number: US-ABBVIE-20K-163-3694196-00

PATIENT
  Sex: Male
  Weight: 77.18 kg

DRUGS (5)
  1. HUMIRA [Suspect]
     Active Substance: ADALIMUMAB
     Indication: PSORIATIC ARTHROPATHY
     Route: 058
     Dates: start: 2017
  2. VYZULTA [Concomitant]
     Active Substance: LATANOPROSTENE BUNOD
     Indication: EYE DISORDER
  3. RHOPRESSA [Concomitant]
     Active Substance: NETARSUDIL MESYLATE
     Indication: EYE DISORDER
  4. DORZOLAMIDE/TIMOLOL [Concomitant]
     Active Substance: DORZOLAMIDE\TIMOLOL
     Indication: EYE DISORDER
  5. PROPECIA [Concomitant]
     Active Substance: FINASTERIDE
     Indication: ALOPECIA

REACTIONS (4)
  - Glaucoma [Recovering/Resolving]
  - Surgical failure [Unknown]
  - Cataract [Unknown]
  - Intraocular pressure increased [Not Recovered/Not Resolved]
